FAERS Safety Report 20144097 (Version 1)
Quarter: 2021Q4

REPORT INFORMATION
  Report Type: Spontaneous
  Country: US (occurrence: US)
  Receive Date: 20211203
  Receipt Date: 20211203
  Transmission Date: 20220304
  Serious: Yes (Hospitalization, Other)
  Sender: FDA-Public Use
  Company Number: US-PFIZER INC-202101640011

PATIENT
  Age: 62 Year
  Sex: Male
  Weight: 94.8 kg

DRUGS (6)
  1. LORAZEPAM [Suspect]
     Active Substance: LORAZEPAM
     Indication: Premedication
     Dosage: 2 MG
     Route: 030
     Dates: start: 20200115
  2. LORAZEPAM [Suspect]
     Active Substance: LORAZEPAM
     Dosage: 3 MG
     Route: 030
     Dates: start: 20200115
  3. LORAZEPAM [Suspect]
     Active Substance: LORAZEPAM
     Dosage: 5 MG
     Route: 030
     Dates: start: 20200115
  4. LORAZEPAM [Suspect]
     Active Substance: LORAZEPAM
     Dosage: 2 MG IV PUSH
     Route: 042
     Dates: start: 20200115
  5. LORAZEPAM [Suspect]
     Active Substance: LORAZEPAM
     Dosage: 2 MG IV PUSH
     Route: 042
     Dates: start: 20200115
  6. ALBUTEROL [Concomitant]
     Active Substance: ALBUTEROL
     Indication: Respiratory distress
     Dosage: UNK
     Route: 055

REACTIONS (2)
  - Overdose [Unknown]
  - Respiratory depression [Unknown]

NARRATIVE: CASE EVENT DATE: 20200115
